FAERS Safety Report 10673269 (Version 2)
Quarter: 2015Q1

REPORT INFORMATION
  Report Type: Spontaneous
  Country: CH (occurrence: CH)
  Receive Date: 20141224
  Receipt Date: 20150313
  Transmission Date: 20150720
  Serious: Yes (Hospitalization, Other)
  Sender: FDA-Public Use
  Company Number: CH-ABBVIE-14K-151-1321957-00

PATIENT
  Age: 26 Year
  Sex: Male
  Weight: 80.7 kg

DRUGS (1)
  1. HUMIRA [Suspect]
     Active Substance: ADALIMUMAB
     Indication: PSORIASIS
     Route: 058
     Dates: start: 20140522, end: 20141216

REACTIONS (11)
  - Pulmonary oedema [Not Recovered/Not Resolved]
  - Pneumonia [Unknown]
  - Acute kidney injury [Not Recovered/Not Resolved]
  - Glomerulonephritis [Unknown]
  - Stenotrophomonas infection [Unknown]
  - Sepsis [Recovered/Resolved]
  - Haemolytic anaemia [Unknown]
  - Asthenia [Unknown]
  - Urinary tract infection enterococcal [Unknown]
  - Klebsiella infection [Unknown]
  - Iron deficiency [Unknown]

NARRATIVE: CASE EVENT DATE: 201412
